FAERS Safety Report 8851099 (Version 1)
Quarter: 2012Q4

REPORT INFORMATION
  Report Type: 
  Country: US (occurrence: US)
  Receive Date: 20121019
  Receipt Date: 20121019
  Transmission Date: 20130627
  Serious: Yes (Life-Threatening)
  Sender: FDA-Public Use
  Company Number: US-VERTEX PHARMACEUTICAL INC.-2012-022963

PATIENT
  Age: 61 Year
  Sex: Male
  Weight: 61 kg

DRUGS (3)
  1. INCIVEK [Suspect]
     Indication: HEPATITIS C
     Dosage: 750 mg, UNK
     Dates: start: 20120810, end: 20120814
  2. PEGASYS [Suspect]
     Indication: HEPATITIS C
     Dosage: 180 ?g, UNK
     Dates: start: 20120810, end: 20120814
  3. RIBASPHERE [Suspect]
     Indication: HEPATITIS C
     Dosage: 200 mg, UNK
     Route: 048
     Dates: start: 20120810, end: 20120814

REACTIONS (7)
  - Rash generalised [Unknown]
  - Disorientation [Unknown]
  - Dizziness [Unknown]
  - Incoherent [Unknown]
  - Headache [Unknown]
  - Chills [Unknown]
  - Feeling jittery [Unknown]
